FAERS Safety Report 18328610 (Version 1)
Quarter: 2020Q3

REPORT INFORMATION
  Report Type: Spontaneous
  Country: US (occurrence: US)
  Receive Date: 20200929
  Receipt Date: 20200929
  Transmission Date: 20201103
  Serious: No
  Sender: FDA-Public Use
  Company Number: None

PATIENT
  Age: 70 Year
  Sex: Male

DRUGS (1)
  1. ERLEADA [Suspect]
     Active Substance: APALUTAMIDE
     Indication: PROSTATE CANCER
     Route: 048

REACTIONS (5)
  - Oropharyngeal pain [None]
  - Burning sensation [None]
  - Gingival pain [None]
  - Gingival disorder [None]
  - Glossitis [None]

NARRATIVE: CASE EVENT DATE: 20200928
